FAERS Safety Report 20838393 (Version 1)
Quarter: 2022Q2

REPORT INFORMATION
  Report Type: Other
  Country: US (occurrence: None)
  Receive Date: 20220517
  Receipt Date: 20220517
  Transmission Date: 20220720
  Serious: Yes (Other)
  Sender: FDA-Public Use
  Company Number: US-ROCHE-3098203

PATIENT
  Sex: Female

DRUGS (2)
  1. XELODA [Suspect]
     Active Substance: CAPECITABINE
     Indication: Breast cancer metastatic
     Dosage: TAKE 3 TABLET(S) BY MOUTH TWICE A DAY 2 WEEK(S) ON, 1 WEEK(S) OFF (TAKE AFTER MEAL WITH A FULL GLASS
     Route: 048
  2. XELODA [Suspect]
     Active Substance: CAPECITABINE
     Indication: Metastases to bone

REACTIONS (1)
  - Neoplasm malignant [Unknown]
